FAERS Safety Report 11807734 (Version 1)
Quarter: 2015Q4

REPORT INFORMATION
  Report Type: Spontaneous
  Country: US (occurrence: US)
  Receive Date: 20151207
  Receipt Date: 20151207
  Transmission Date: 20160305
  Serious: No
  Sender: FDA-Public Use
  Company Number: US-FRI-1000079277

PATIENT
  Sex: Female
  Weight: 59 kg

DRUGS (4)
  1. LEVOTHROID [Suspect]
     Active Substance: LEVOTHYROXINE SODIUM
     Indication: GOITRE
     Dosage: 0.125 MCG
     Route: 048
  2. LEVOTHROID [Suspect]
     Active Substance: LEVOTHYROXINE SODIUM
  3. LEVOTHROID [Suspect]
     Active Substance: LEVOTHYROXINE SODIUM
  4. LEVOTHROID [Suspect]
     Active Substance: LEVOTHYROXINE SODIUM
     Dosage: 0.100
     Route: 048

REACTIONS (2)
  - Rash [Unknown]
  - Nausea [Unknown]
